FAERS Safety Report 5117603-1 (Version None)
Quarter: 2006Q2

REPORT INFORMATION
  Report Type: 
  Country: None (occurrence: None)
  Receive Date: 20060614
  Receipt Date: 20060908
  Transmission Date: 20061013
  Serious: Yes (Hospitalization)
  Sender: FDA-Public Use
  Company Number: 2006P1000439

PATIENT
  Age: 73 Year
  Sex: Male
  Weight: 80 kg

DRUGS (18)
  1. RETEPLASE (RETEPLASE) [Suspect]
     Indication: ACUTE MYOCARDIAL INFARCTION
     Dosage: IV
     Route: 042
     Dates: start: 20060501, end: 20060501
  2. REOPRO [Suspect]
     Indication: ACUTE MYOCARDIAL INFARCTION
     Dosage: IV
     Route: 042
     Dates: start: 20060501
  3. TICLOPIDINE [Concomitant]
  4. ASPIRIN [Concomitant]
  5. TRIMETAZIDINE [Concomitant]
  6. SIMVASTATIN [Concomitant]
  7. SIMVASTATIN [Concomitant]
  8. PERINDOPRIL ERBUMINE [Concomitant]
  9. PERINDOPRIL ERBUMINE [Concomitant]
  10. METOPROLOL [Concomitant]
  11. SPIRONOLACTONE [Concomitant]
  12. SPIRONOLACTONE [Concomitant]
  13. SPIRONOLACTONE [Concomitant]
  14. PRUNUS AFRICANA [Concomitant]
  15. PRUNUS AFRICANA [Concomitant]
  16. DOXAZOSIN [Concomitant]
  17. DOXAZOSIN [Concomitant]
  18. METOPROLOL [Concomitant]

REACTIONS (1)
  - CORONARY ARTERY STENOSIS [None]
